FAERS Safety Report 11894187 (Version 1)
Quarter: 2016Q1

REPORT INFORMATION
  Report Type: Spontaneous
  Country: DE (occurrence: None)
  Receive Date: 20160106
  Receipt Date: 20160106
  Transmission Date: 20160526
  Serious: Yes (Hospitalization)
  Sender: FDA-Public Use
  Company Number: None

PATIENT
  Age: 72 Year
  Sex: Male

DRUGS (3)
  1. RIBAVIRIN 200-0-400 (MG) [Suspect]
     Active Substance: RIBAVIRIN
     Indication: HEPATITIS C
     Dosage: 200-0-400MG 1X
     Route: 048
     Dates: start: 20150720, end: 20160104
  2. DACLATASVIR 0-60-0-0 (MG) [Suspect]
     Active Substance: DACLATASVIR
     Indication: HEPATITIS C
     Route: 048
     Dates: end: 20160104
  3. SOFOSBUVIR [Suspect]
     Active Substance: SOFOSBUVIR

REACTIONS (2)
  - Haemoglobin decreased [None]
  - Melaena [None]

NARRATIVE: CASE EVENT DATE: 20150117
